FAERS Safety Report 15191083 (Version 1)
Quarter: 2018Q3

REPORT INFORMATION
  Report Type: Spontaneous
  Country: FR (occurrence: FR)
  Receive Date: 20180724
  Receipt Date: 20180724
  Transmission Date: 20181010
  Serious: Yes (Hospitalization)
  Sender: FDA-Public Use
  Company Number: FR-MYLANLABS-2018M1053296

PATIENT
  Age: 63 Year
  Sex: Male

DRUGS (2)
  1. CLAMOXYL                           /00249601/ [Suspect]
     Active Substance: AMOXICILLIN
     Indication: MENINGITIS
     Dosage: 14 G, QD
     Route: 041
     Dates: start: 20180226, end: 20180303
  2. ACICLOVIR MYLAN [Suspect]
     Active Substance: ACYCLOVIR
     Indication: MENINGITIS
     Dosage: 2100 MG, QD
     Route: 041
     Dates: start: 20180226, end: 201803

REACTIONS (2)
  - Nervous system disorder [Recovered/Resolved]
  - Acute kidney injury [Recovering/Resolving]

NARRATIVE: CASE EVENT DATE: 20180303
